FAERS Safety Report 17943802 (Version 1)
Quarter: 2020Q2

REPORT INFORMATION
  Report Type: Spontaneous
  Country: FR (occurrence: FR)
  Receive Date: 20200625
  Receipt Date: 20200625
  Transmission Date: 20200714
  Serious: Yes (Hospitalization)
  Sender: FDA-Public Use
  Company Number: NVSC2020FR174022

PATIENT
  Age: 50 Year
  Sex: Male

DRUGS (1)
  1. AMOXICILLINE [Suspect]
     Active Substance: AMOXICILLIN
     Indication: DENTAL DISORDER PROPHYLAXIS
     Dosage: 1 G, UNKNOWN
     Route: 048
     Dates: start: 20200416, end: 20200416

REACTIONS (5)
  - Vertigo [Recovered/Resolved]
  - Hypotension [Recovered/Resolved]
  - Rash papular [Recovered/Resolved]
  - Anaphylactoid reaction [Recovered/Resolved]
  - Pruritus [Recovered/Resolved]

NARRATIVE: CASE EVENT DATE: 20200416
